FAERS Safety Report 7401797 (Version 4)
Quarter: 2018Q4

REPORT INFORMATION
  Report Type: Spontaneous
  Country: FR (occurrence: FR)
  Receive Date: 20100527
  Receipt Date: 20181016
  Transmission Date: 20190205
  Serious: Yes (Other)
  Sender: FDA-Public Use
  Company Number: FR-PFIZER INC-2010061296

PATIENT
  Age: 71 Year
  Sex: Female
  Weight: 70 kg

DRUGS (7)
  1. POVIDONE [Concomitant]
     Active Substance: POVIDONE
     Dosage: UNK
     Dates: start: 2006
  2. CRESTOR [Concomitant]
     Active Substance: ROSUVASTATIN CALCIUM
     Dosage: 5 MG, UNK
     Route: 048
     Dates: start: 2007
  3. TEGELINE [Suspect]
     Active Substance: HUMAN IMMUNOGLOBULIN G
     Indication: NEUROPATHY PERIPHERAL
     Dosage: 0.4 KG/J
     Route: 042
     Dates: start: 20100301, end: 20100305
  4. LUMIGAN [Concomitant]
     Active Substance: BIMATOPROST
     Dosage: UNK
     Dates: start: 2006
  5. CYMBALTA [Suspect]
     Active Substance: DULOXETINE HYDROCHLORIDE
     Indication: NEURALGIA
     Dosage: 60 MG, 1X/DAY
     Route: 048
     Dates: start: 20100301
  6. LYRICA [Suspect]
     Active Substance: PREGABALIN
     Indication: NEURALGIA
     Dosage: 150 MG, 1X/DAY
     Route: 048
     Dates: start: 2008, end: 20100301
  7. PARACETAMOL [Concomitant]
     Active Substance: ACETAMINOPHEN
     Dosage: 1 G, AS NEEDED

REACTIONS (3)
  - Hypertensive crisis [Recovered/Resolved]
  - Nausea [Recovered/Resolved]
  - Vomiting [Recovered/Resolved]

NARRATIVE: CASE EVENT DATE: 20100302
